FAERS Safety Report 5484832-7 (Version None)
Quarter: 2007Q4

REPORT INFORMATION
  Report Type: 
  Country: None (occurrence: None)
  Receive Date: 20071010
  Receipt Date: 20070925
  Transmission Date: 20080405
  Serious: Yes (Hospitalization)
  Sender: FDA-Public Use
  Company Number: 2007BM000130

PATIENT
  Age: 33 Year
  Sex: Female

DRUGS (2)
  1. PREDNISONE [Suspect]
     Indication: COLITIS ULCERATIVE
     Dosage: 5 MG; QD;
  2. ORAPRED [Suspect]

REACTIONS (4)
  - ACTINOMYCOSIS [None]
  - BREAST ABSCESS [None]
  - BREAST CELLULITIS [None]
  - IMPAIRED HEALING [None]
